FAERS Safety Report 24324547 (Version 3)
Quarter: 2024Q3

REPORT INFORMATION
  Report Type: Spontaneous
  Country: JP (occurrence: JP)
  Receive Date: 20240916
  Receipt Date: 20240919
  Transmission Date: 20241017
  Serious: Yes (Hospitalization, Other)
  Sender: PFIZER
  Company Number: JP-MLMSERVICE-20240903-PI182338-00218-1

PATIENT
  Age: 9 Decade
  Sex: Male

DRUGS (2)
  1. METHOTREXATE SODIUM [Suspect]
     Active Substance: METHOTREXATE SODIUM
     Indication: Rheumatoid arthritis
     Dosage: 8 MG, WEEKLY
  2. FOLIC ACID [Concomitant]
     Active Substance: FOLIC ACID
     Indication: Rheumatoid arthritis
     Dosage: UNK

REACTIONS (8)
  - Acute kidney injury [Unknown]
  - Epstein Barr virus positive mucocutaneous ulcer [Recovered/Resolved]
  - Toxicity to various agents [Unknown]
  - Sepsis [Unknown]
  - Erythroid dysplasia [Unknown]
  - Febrile neutropenia [Unknown]
  - Myelosuppression [Unknown]
  - Enterococcal infection [Unknown]
